FAERS Safety Report 6653827-X (Version None)
Quarter: 2010Q1

REPORT INFORMATION
  Report Type: 
  Country: None (occurrence: None)
  Receive Date: 20100326
  Receipt Date: 20100318
  Transmission Date: 20100710
  Serious: Yes (Death)
  Sender: FDA-Public Use
  Company Number: B0637342A

PATIENT
  Sex: Male
  Weight: 112 kg

DRUGS (3)
  1. SERETIDE [Suspect]
     Indication: ASTHMA
     Route: 065
     Dates: start: 20090101
  2. VENTOLIN [Suspect]
     Indication: ASTHMA
     Route: 065
     Dates: start: 20090101
  3. REDIPRED [Concomitant]
     Route: 065
     Dates: start: 20100205

REACTIONS (1)
  - ASTHMA [None]
